FAERS Safety Report 4493385-1 (Version None)
Quarter: 2004Q4

REPORT INFORMATION
  Report Type: 
  Country: None (occurrence: None)
  Receive Date: 20041102
  Receipt Date: 20041020
  Transmission Date: 20050328
  Serious: Yes (Other)
  Sender: FDA-Public Use
  Company Number: HQWYE129627OCT04

PATIENT
  Age: 6 Year
  Sex: Female
  Weight: 24.97 kg

DRUGS (5)
  1. CHILDREN'S ADVIL [Suspect]
     Indication: PHARYNGOLARYNGEAL PAIN
     Dosage: SEE IMAGE
     Route: 048
     Dates: start: 19980101, end: 20040101
  2. CHILDREN'S ADVIL [Suspect]
     Indication: PHARYNGOLARYNGEAL PAIN
     Dosage: SEE IMAGE
     Route: 048
     Dates: start: 20040401, end: 20040401
  3. CHILDREN'S ADVIL [Suspect]
     Indication: PHARYNGOLARYNGEAL PAIN
     Dosage: SEE IMAGE
     Route: 048
     Dates: start: 20041001, end: 20041001
  4. CHILDREN'S ADVIL [Suspect]
     Indication: PHARYNGOLARYNGEAL PAIN
     Dosage: SEE IMAGE
     Route: 048
     Dates: start: 20041019
  5. BENADRYL [Concomitant]

REACTIONS (1)
  - HYPERSENSITIVITY [None]
